FAERS Safety Report 25056596 (Version 1)
Quarter: 2025Q1

REPORT INFORMATION
  Report Type: Spontaneous
  Country: TN (occurrence: TN)
  Receive Date: 20250310
  Receipt Date: 20250310
  Transmission Date: 20250409
  Serious: Yes (Other)
  Sender: UCB
  Company Number: TN-UCBSA-2025012654

PATIENT
  Age: 27 Year
  Sex: Male
  Weight: 75 kg

DRUGS (1)
  1. CIMZIA [Suspect]
     Active Substance: CERTOLIZUMAB PEGOL
     Indication: Rheumatoid arthritis
     Dosage: 200 MILLIGRAM, EV 2 WEEKS(QOW)
     Dates: start: 20240801

REACTIONS (1)
  - Polymyositis [Not Recovered/Not Resolved]

NARRATIVE: CASE EVENT DATE: 20241101
